FAERS Safety Report 7644870-2 (Version None)
Quarter: 2011Q3

REPORT INFORMATION
  Report Type: 
  Country: None (occurrence: None)
  Receive Date: 20110725
  Receipt Date: 20110708
  Transmission Date: 20111222
  Serious: Yes (Hospitalization, Congenital Anomaly)
  Sender: FDA-Public Use
  Company Number: SPIR20110006

PATIENT
  Age: 2 Day
  Sex: Male

DRUGS (1)
  1. SPIRONOLACTONE [Suspect]
     Indication: MATERNAL EXPOSURE DURING PREGNANCY
     Dosage: TRANSPLACENTAL
     Route: 064

REACTIONS (4)
  - GENITALIA EXTERNAL AMBIGUOUS [None]
  - BLOOD THYROID STIMULATING HORMONE INCREASED [None]
  - MATERNAL DRUGS AFFECTING FOETUS [None]
  - BLOOD TESTOSTERONE INCREASED [None]
